FAERS Safety Report 18486546 (Version 3)
Quarter: 2022Q1

REPORT INFORMATION
  Report Type: Report from Study
  Country: US (occurrence: US)
  Receive Date: 20201110
  Receipt Date: 20220114
  Transmission Date: 20220423
  Serious: Yes (Hospitalization)
  Sender: FDA-Public Use
  Company Number: US-PFIZER INC-2020428129

PATIENT
  Age: 60 Year
  Sex: Male
  Weight: 58.7 kg

DRUGS (1)
  1. SUNITINIB MALATE [Suspect]
     Active Substance: SUNITINIB MALATE
     Indication: Malignant neoplasm of thymus
     Dosage: 50 MG PO QD ON DAYS 1-28, CYCLE=6 WEEKS
     Route: 048
     Dates: start: 20131002, end: 20200422

REACTIONS (3)
  - Hypoaesthesia [Not Recovered/Not Resolved]
  - Hyperglycaemia [Recovered/Resolved]
  - Hypotension [Recovered/Resolved]

NARRATIVE: CASE EVENT DATE: 20200521
